FAERS Safety Report 5450608-X (Version None)
Quarter: 2007Q3

REPORT INFORMATION
  Report Type: 
  Country: None (occurrence: None)
  Receive Date: 20070912
  Receipt Date: 20070810
  Transmission Date: 20080115
  Serious: No
  Sender: FDA-Public Use
  Company Number: BE-BAXTER-2007BH007033

PATIENT
  Age: 68 Year
  Sex: Female

DRUGS (1)
  1. PLASMA-LYTE 148 IN DEXTROSE 5% IN PLASTIC CONTAINER [Suspect]
     Indication: DRUG USE FOR UNKNOWN INDICATION
     Dosage: DOSE UNIT:UNKNOWN
     Route: 065

REACTIONS (1)
  - FALSE POSITIVE LABORATORY RESULT [None]
